FAERS Safety Report 13803030 (Version 3)
Quarter: 2018Q1

REPORT INFORMATION
  Report Type: Spontaneous
  Country: ES (occurrence: ES)
  Receive Date: 20170728
  Receipt Date: 20180219
  Transmission Date: 20180508
  Serious: Yes (Death, Hospitalization)
  Sender: FDA-Public Use
  Company Number: ES-ROCHE-1966698

PATIENT
  Age: 80 Year
  Sex: Male

DRUGS (5)
  1. GAZYVARO [Suspect]
     Active Substance: OBINUTUZUMAB
     Dosage: RECEIVED 5 CYCLES ?FOLLICULAR LYMPHOMA IN COMPLETE REMISSION (MAINTENANCE)
     Route: 042
     Dates: start: 20161125, end: 20170714
  2. RITUXIMAB. [Concomitant]
     Active Substance: RITUXIMAB
     Indication: LYMPHOMA
     Route: 042
     Dates: start: 20151030, end: 20160212
  3. GENOXAL [Concomitant]
     Active Substance: CYCLOPHOSPHAMIDE
     Indication: LYMPHOMA
     Route: 042
     Dates: start: 20151030, end: 20160212
  4. GAZYVARO [Suspect]
     Active Substance: OBINUTUZUMAB
     Indication: LYMPHOMA
     Dosage: RECEIVED 6 CYCLES?FOLLICULAR LYMPHOMA (REFRACTORY)
     Route: 042
     Dates: start: 20160519, end: 20161001
  5. BENDAMUSTINE [Suspect]
     Active Substance: BENDAMUSTINE
     Indication: LYMPHOMA
     Dosage: RECEIVED 6 CYCLES?STRENGTH: 2.5 MG/ML
     Route: 042
     Dates: start: 20160519, end: 20161001

REACTIONS (1)
  - Progressive multifocal leukoencephalopathy [Fatal]

NARRATIVE: CASE EVENT DATE: 20170612
